FAERS Safety Report 9563491 (Version 1)
Quarter: 2013Q1

REPORT INFORMATION
  Report Type: Spontaneous
  Country: US (occurrence: None)
  Receive Date: 20121227
  Receipt Date: 20121227
  Transmission Date: 20140127
  Serious: Yes (Hospitalization)
  Sender: FDA-Public Use
  Company Number: PHEH2012US013107

PATIENT
  Age: 41 Year
  Sex: Female

DRUGS (1)
  1. EXJADE (*CGP 72670*) [Suspect]
     Indication: IRON OVERLOAD
     Route: 048
     Dates: start: 2001

REACTIONS (1)
  - Sickle cell anaemia with crisis [None]
